FAERS Safety Report 5215450-3 (Version None)
Quarter: 2007Q1

REPORT INFORMATION
  Report Type: 
  Country: None (occurrence: None)
  Receive Date: 20070119
  Receipt Date: 20070119
  Transmission Date: 20070707
  Serious: No
  Sender: FDA-Public Use
  Company Number: None

PATIENT
  Age: 59 Year
  Sex: Female
  Weight: 70.3075 kg

DRUGS (1)
  1. AMBIEN [Suspect]
     Indication: INSOMNIA
     Dosage: 10 MG  1 TIME AT NIGHT

REACTIONS (4)
  - EMOTIONAL DISORDER [None]
  - FLAT AFFECT [None]
  - HYPOAESTHESIA [None]
  - MUSCLE DISORDER [None]
